FAERS Safety Report 9839274 (Version 1)
Quarter: 2014Q1

REPORT INFORMATION
  Report Type: Spontaneous
  Country: US (occurrence: None)
  Receive Date: 20140116
  Receipt Date: 20140116
  Transmission Date: 20141002
  Serious: Yes (Hospitalization)
  Sender: FDA-Public Use
  Company Number: B0959528A

PATIENT
  Age: 52 Year
  Sex: Male

DRUGS (2)
  1. VALACICLOVIR HYDROCHLORIDE [Suspect]
     Indication: HERPES ZOSTER
     Dosage: 1 GRAM(S)/ THREE TIMES PER DAY/ UNKNOWN
  2. ACYCLOVIR [Suspect]
     Indication: HERPES SIMPLEX
     Dosage: 600 MG/ TWICE PER DAY/ INTRAVENOUS
     Route: 042

REACTIONS (11)
  - Status epilepticus [None]
  - Irritability [None]
  - Restlessness [None]
  - Hallucination, auditory [None]
  - Speech disorder [None]
  - Hypertension [None]
  - Somnolence [None]
  - Disorientation [None]
  - Neurotoxicity [None]
  - Hypertonia [None]
  - Muscle contractions involuntary [None]
